FAERS Safety Report 25294378 (Version 1)
Quarter: 2025Q2

REPORT INFORMATION
  Report Type: Spontaneous
  Country: US (occurrence: US)
  Receive Date: 20250511
  Receipt Date: 20250511
  Transmission Date: 20250717
  Serious: No
  Sender: SANOFI AVENTIS
  Company Number: US-SA-2025SA125322

PATIENT
  Age: 71 Year
  Sex: Female
  Weight: 59.09 kg

DRUGS (1)
  1. DUPIXENT [Suspect]
     Active Substance: DUPILUMAB
     Indication: Dermatitis atopic
     Dosage: 300 MG (2 ML) QOW
     Route: 058

REACTIONS (3)
  - Injection site haemorrhage [Unknown]
  - Vein rupture [Unknown]
  - Wrong technique in product usage process [Unknown]
